FAERS Safety Report 6102343-2 (Version None)
Quarter: 2009Q1

REPORT INFORMATION
  Report Type: 
  Country: None (occurrence: None)
  Receive Date: 20090304
  Receipt Date: 20090225
  Transmission Date: 20090719
  Serious: Yes (Death, Other)
  Sender: FDA-Public Use
  Company Number: US-BAYER-US-2007-006366

PATIENT
  Age: 70 Year
  Sex: Male
  Weight: 82 kg

DRUGS (24)
  1. MAGNEVIST [Suspect]
     Indication: ANGIOGRAM
     Dosage: UNIT DOSE: 20 ML
     Route: 042
     Dates: start: 20030408, end: 20030408
  2. MAGNEVIST [Suspect]
     Dosage: UNIT DOSE: 20 ML
     Route: 042
     Dates: start: 20040113, end: 20040113
  3. MAGNEVIST [Suspect]
     Dosage: UNIT DOSE: 60 ML
     Route: 042
     Dates: start: 20021126, end: 20021126
  4. OMNISCAN [Suspect]
     Indication: ANGIOGRAM
  5. OPTIMARK [Suspect]
     Indication: ANGIOGRAM
  6. MULTIHANCE [Suspect]
     Indication: ANGIOGRAM
  7. PROHANCE [Suspect]
     Indication: ANGIOGRAM
  8. ANTINEOPLASTIC AGENTS [Concomitant]
     Indication: BLADDER CANCER
     Dates: start: 20060101
  9. EPOGEN [Concomitant]
     Indication: ANAEMIA
     Route: 058
  10. IBUPROFEN [Concomitant]
     Indication: PAIN
     Dosage: UNIT DOSE: 400 MG
     Route: 048
  11. FERROUS SULFATE TAB [Concomitant]
     Indication: ANAEMIA
     Route: 048
  12. MULTI-VITAMINS [Concomitant]
     Route: 048
  13. TOCOPHEROL CONCENTRATE CAP [Concomitant]
     Dosage: UNIT DOSE: 800 IU
     Route: 048
  14. CALCITRIOL [Concomitant]
     Dosage: UNIT DOSE: 0.25 ?G
     Route: 048
  15. SEVELAMER [Concomitant]
     Dosage: UNIT DOSE: 800 MG
     Route: 048
  16. CALCIUM ACETATE [Concomitant]
     Dosage: UNIT DOSE: 667 MG
     Route: 048
  17. SODIUM BICARBONATE [Concomitant]
     Dosage: UNIT DOSE: 650 MG
  18. ALENDRONATE SODIUM [Concomitant]
     Dosage: UNIT DOSE: 35 MG
  19. EZETIMIBE [Concomitant]
     Dosage: UNIT DOSE: 10 MG
  20. FUROSEMIDE [Concomitant]
     Dosage: UNIT DOSE: 40 MG
  21. DOXAZOSIN MESYLATE [Concomitant]
     Dosage: UNIT DOSE: 6 MG
  22. LISINOPRIL [Concomitant]
     Indication: HYPERTENSION
     Dosage: UNIT DOSE: 5 MG
  23. AMIODARONE HCL [Concomitant]
     Dosage: UNIT DOSE: 200 MG
     Route: 048
  24. COUMADIN [Concomitant]
     Dosage: UNIT DOSE: 1.5 MG
     Route: 048

REACTIONS (15)
  - ABASIA [None]
  - BLADDER CANCER [None]
  - JOINT CONTRACTURE [None]
  - JOINT RANGE OF MOTION DECREASED [None]
  - MUSCULOSKELETAL STIFFNESS [None]
  - NEPHROGENIC SYSTEMIC FIBROSIS [None]
  - PAIN [None]
  - PRURITUS [None]
  - RASH PAPULAR [None]
  - SKIN DISCOLOURATION [None]
  - SKIN HYPERPIGMENTATION [None]
  - SKIN HYPERTROPHY [None]
  - SKIN INDURATION [None]
  - SKIN TIGHTNESS [None]
  - XEROSIS [None]
